FAERS Safety Report 19954073 (Version 1)
Quarter: 2021Q4

REPORT INFORMATION
  Report Type: Spontaneous
  Country: DE (occurrence: DE)
  Receive Date: 20211013
  Receipt Date: 20211013
  Transmission Date: 20220303
  Serious: Yes (Hospitalization)
  Sender: FDA-Public Use
  Company Number: DE-ADRED-06813-01

PATIENT
  Age: 57 Year
  Sex: Female
  Weight: 74 kg

DRUGS (7)
  1. ATORVASTATIN [Interacting]
     Active Substance: ATORVASTATIN
     Indication: Product used for unknown indication
     Dosage: 80 MG, 0-0-1-0, TABLETTEN
     Route: 048
  2. RANOLAZINE [Interacting]
     Active Substance: RANOLAZINE
     Indication: Product used for unknown indication
     Dosage: 375 MG, 0-0-1-0, RETARD-TABLETTEN
     Route: 048
  3. PANTOPRAZOLE [Concomitant]
     Active Substance: PANTOPRAZOLE
     Dosage: 20 MG, 0-0-1-0, RETARD-TABLETTEN
     Route: 048
  4. LEVOTHYROXINE [Concomitant]
     Active Substance: LEVOTHYROXINE
     Dosage: 0.15 MG, 1-0-0-0, TABLETTEN
     Route: 048
  5. ASPIRIN [Concomitant]
     Active Substance: ASPIRIN
     Dosage: 100 MG, 0-1-0-0, TABLETTEN
     Route: 048
  6. METOPROLOL [Concomitant]
     Active Substance: METOPROLOL
     Dosage: 23.75 MILLIGRAM, BID (47.5 MG, 0.5-0-0.5-0, RETARD-TABLETTEN)
     Route: 048
  7. IRON [Concomitant]
     Active Substance: IRON
     Dosage: 100 MG, 1-0-0-0, RETARD-KAPSELN
     Route: 048

REACTIONS (7)
  - Chromaturia [Unknown]
  - Liver function test abnormal [Unknown]
  - Faeces pale [Unknown]
  - Ocular icterus [Unknown]
  - Abdominal pain [Unknown]
  - Muscle spasms [Unknown]
  - Labelled drug-drug interaction medication error [Unknown]
